FAERS Safety Report 7659605-7 (Version None)
Quarter: 2011Q3

REPORT INFORMATION
  Report Type: 
  Country: None (occurrence: None)
  Receive Date: 20110805
  Receipt Date: 20110801
  Transmission Date: 20111222
  Serious: Yes (Hospitalization)
  Sender: FDA-Public Use
  Company Number: US-MERCK-1005USA04388

PATIENT
  Age: 65 Year
  Sex: Female

DRUGS (8)
  1. JANUVIA [Suspect]
     Indication: TYPE 2 DIABETES MELLITUS
     Route: 048
     Dates: start: 20070101
  2. SERAX [Concomitant]
     Route: 065
  3. FERROUS SULFATE [Concomitant]
     Route: 065
  4. NEURONTIN [Concomitant]
     Route: 065
  5. STATIN (UNSPECIFIED) [Concomitant]
     Route: 065
  6. CYANOCOBALAMIN [Concomitant]
     Route: 065
  7. ATENOLOL [Concomitant]
     Route: 065
  8. ATENUAL [Concomitant]
     Route: 065

REACTIONS (13)
  - PRURITUS [None]
  - SKIN MASS [None]
  - PARAESTHESIA [None]
  - SWOLLEN TONGUE [None]
  - HYPOAESTHESIA [None]
  - SWELLING FACE [None]
  - INSOMNIA [None]
  - URTICARIA [None]
  - PHARYNGEAL OEDEMA [None]
  - PERIPHERAL COLDNESS [None]
  - ABDOMINAL PAIN UPPER [None]
  - OESOPHAGEAL SPASM [None]
  - UPPER RESPIRATORY TRACT INFECTION [None]
